FAERS Safety Report 9795961 (Version 2)
Quarter: 2014Q1

REPORT INFORMATION
  Report Type: Spontaneous
  Country: US (occurrence: US)
  Receive Date: 20140103
  Receipt Date: 20140103
  Transmission Date: 20141002
  Serious: Yes (Death)
  Sender: FDA-Public Use
  Company Number: US-CUBIST PHARMACEUTICAL, INC.-2012S1000427

PATIENT
  Sex: 0

DRUGS (8)
  1. CUBICIN [Suspect]
     Indication: OSTEOMYELITIS
     Dosage: 9.43 MG/KG, Q24H
     Route: 042
     Dates: start: 20100629, end: 20100705
  2. CUBICIN [Suspect]
     Indication: STAPHYLOCOCCAL BACTERAEMIA
     Dosage: 800 MG, Q24H
     Route: 042
     Dates: start: 20100629, end: 20100705
  3. CARVEDILOL [Concomitant]
     Indication: CORONARY ARTERY DISEASE
     Dosage: 3.125 MG, BID
     Route: 048
     Dates: start: 20100626, end: 20100629
  4. CLOPIDOGREL [Concomitant]
     Indication: CORONARY ARTERY DISEASE
     Dosage: 75 MG, QD
     Route: 048
     Dates: start: 20100627, end: 20100705
  5. HEPARIN [Concomitant]
     Indication: PROPHYLAXIS
     Dosage: 5000 UNK, TID
     Dates: start: 20100626, end: 20100705
  6. INSULIN ASPART [Concomitant]
     Indication: DIABETES MELLITUS
     Dosage: UNK UNK, TID
     Route: 058
     Dates: start: 20100626, end: 20100705
  7. LANSOPRAZOLE [Concomitant]
     Indication: PROPHYLAXIS
     Dosage: 30 MG, QD
     Route: 048
     Dates: start: 20100703, end: 20100705
  8. PIPERACILLIN/TAZOBACTAM [Concomitant]
     Indication: PRODUCT USED FOR UNKNOWN INDICATION
     Dosage: 3.375 GM, Q8H
     Route: 042
     Dates: start: 20100626, end: 20100705

REACTIONS (1)
  - Respiratory failure [Fatal]
